FAERS Safety Report 24706135 (Version 1)
Quarter: 2024Q4

REPORT INFORMATION
  Report Type: Spontaneous
  Country: US (occurrence: None)
  Receive Date: 20241206
  Receipt Date: 20241206
  Transmission Date: 20250115
  Serious: Yes (Hospitalization)
  Sender: Public
  Company Number: None

PATIENT
  Age: 46 Year
  Sex: Female
  Weight: 72.6 kg

DRUGS (2)
  1. IPILIMUMAB [Suspect]
     Active Substance: IPILIMUMAB
     Dates: end: 20240611
  2. NIVOLUMAB [Suspect]
     Active Substance: NIVOLUMAB
     Dates: end: 20240611

REACTIONS (6)
  - Dizziness [None]
  - Syncope [None]
  - Fall [None]
  - Face injury [None]
  - Skin laceration [None]
  - Hypophagia [None]

NARRATIVE: CASE EVENT DATE: 20241122
